FAERS Safety Report 14097384 (Version 1)
Quarter: 2017Q4

REPORT INFORMATION
  Report Type: Spontaneous
  Country: US (occurrence: US)
  Receive Date: 20171016
  Receipt Date: 20171016
  Transmission Date: 20180321
  Serious: Yes (Disabling)
  Sender: FDA-Public Use
  Company Number: None

PATIENT
  Age: 42 Year
  Sex: Female
  Weight: 73.8 kg

DRUGS (7)
  1. CIPRO [Suspect]
     Active Substance: CIPROFLOXACIN HYDROCHLORIDE
     Indication: DIVERTICULITIS
     Dosage: ?          QUANTITY:1 TABLET(S);?
     Route: 048
     Dates: start: 20171002, end: 20171006
  2. VITAMIN D3 [Concomitant]
     Active Substance: CHOLECALCIFEROL
  3. FISH OIL [Concomitant]
     Active Substance: FISH OIL
  4. PROBIOTIC [Concomitant]
     Active Substance: PROBIOTICS NOS
  5. LIPITOR [Concomitant]
     Active Substance: ATORVASTATIN CALCIUM
  6. ALYCACEN [Concomitant]
  7. METHYLCARE [Concomitant]

REACTIONS (5)
  - Fatigue [None]
  - Joint crepitation [None]
  - Drug ineffective [None]
  - Arthralgia [None]
  - Hypoaesthesia [None]

NARRATIVE: CASE EVENT DATE: 20171003
